FAERS Safety Report 6032678-3 (Version None)
Quarter: 2008Q4

REPORT INFORMATION
  Report Type: 
  Country: None (occurrence: None)
  Receive Date: 20081224
  Receipt Date: 20081027
  Transmission Date: 20090506
  Serious: No
  Sender: FDA-Public Use
  Company Number: 2008PV036980

PATIENT
  Age: 45 Year
  Sex: Female

DRUGS (5)
  1. SYMLIN [Suspect]
     Indication: TYPE 2 DIABETES MELLITUS
     Dosage: 60 UNITS;X1;SC ;SC
     Route: 058
     Dates: start: 20050101, end: 20050101
  2. SYMLIN [Suspect]
     Indication: TYPE 2 DIABETES MELLITUS
     Dosage: 60 UNITS;X1;SC ;SC
     Route: 058
     Dates: start: 20081027, end: 20081027
  3. SYMLIN [Suspect]
  4. SYMLIN [Suspect]
     Indication: TYPE 1 DIABETES MELLITUS
     Dosage: 60 MCG;TID;SC
     Route: 058
     Dates: start: 20080601
  5. INSULIN [Concomitant]

REACTIONS (4)
  - DYSPEPSIA [None]
  - EXPIRED DRUG ADMINISTERED [None]
  - INCORRECT DOSE ADMINISTERED [None]
  - NAUSEA [None]
